FAERS Safety Report 6380663-4 (Version None)
Quarter: 2009Q3

REPORT INFORMATION
  Report Type: 
  Country: None (occurrence: None)
  Receive Date: 20090929
  Receipt Date: 20090921
  Transmission Date: 20100115
  Serious: Yes (Death, Hospitalization)
  Sender: FDA-Public Use
  Company Number: ZA-JNJFOC-20090902532

PATIENT
  Sex: Female
  Weight: 92 kg

DRUGS (2)
  1. REVELLEX [Suspect]
     Route: 042
     Dates: start: 20090722, end: 20090902
  2. REVELLEX [Suspect]
     Indication: RHEUMATOID ARTHRITIS
     Route: 042
     Dates: start: 20090722, end: 20090902

REACTIONS (2)
  - DEATH [None]
  - PYREXIA [None]
